FAERS Safety Report 4504367-5 (Version None)
Quarter: 2004Q4

REPORT INFORMATION
  Report Type: 
  Country: None (occurrence: None)
  Receive Date: 20041115
  Receipt Date: 20041028
  Transmission Date: 20050328
  Serious: Yes (Death, Hospitalization)
  Sender: FDA-Public Use
  Company Number: 9150

PATIENT
  Age: 71 Year
  Sex: Female
  Weight: 81 kg

DRUGS (4)
  1. DAUORUBICIN [Suspect]
     Indication: ACUTE MYELOID LEUKAEMIA
     Dosage: 45 MG/M2 DAILY IV
     Route: 042
     Dates: start: 20040824, end: 20040826
  2. CYTARABINE [Suspect]
     Indication: ACUTE MYELOID LEUKAEMIA
     Dosage: 100 MG/M2 DAILY IV
     Route: 042
     Dates: start: 20040824, end: 20040831
  3. MDR-INTRAVENOUS FORMULATION [Suspect]
     Indication: ACUTE MYELOID LEUKAEMIA
     Dosage: 550 MG DAILY IV
     Route: 042
     Dates: start: 20040824, end: 20040826
  4. GM-CSF [Concomitant]

REACTIONS (12)
  - ATELECTASIS [None]
  - BONE MARROW DEPRESSION [None]
  - CHEST PAIN [None]
  - CHEST WALL PAIN [None]
  - EPISTAXIS [None]
  - FEBRILE NEUTROPENIA [None]
  - HYPOXIA [None]
  - LUNG INFILTRATION [None]
  - PLEURAL EFFUSION [None]
  - PNEUMONIA [None]
  - PNEUMONITIS [None]
  - PULMONARY MYCOSIS [None]
